FAERS Safety Report 8294108-0 (Version None)
Quarter: 2012Q2

REPORT INFORMATION
  Report Type: 
  Country: None (occurrence: None)
  Receive Date: 20120418
  Receipt Date: 20120410
  Transmission Date: 20120825
  Serious: Yes (Other)
  Sender: FDA-Public Use
  Company Number: PHFR2012GB001878

PATIENT
  Sex: Male
  Weight: 88.9 kg

DRUGS (5)
  1. CLOZARIL [Suspect]
     Dosage: 400 MG, DAILY
     Route: 048
  2. OMEPRAZOLE [Concomitant]
     Indication: GASTROOESOPHAGEAL REFLUX DISEASE
     Dosage: 20 MG, DAILY
     Route: 048
  3. HYOSCINE HBR HYT [Concomitant]
     Indication: EXTRAPYRAMIDAL DISORDER
     Dosage: 300 MG, DAILY
     Route: 048
  4. SENNA [Concomitant]
     Indication: CONSTIPATION
     Dosage: 15 ML, DAILY
     Route: 048
  5. CLOZARIL [Suspect]
     Indication: PSYCHOTIC DISORDER
     Route: 048
     Dates: start: 20030214

REACTIONS (7)
  - GASTROENTERITIS VIRAL [None]
  - VOMITING [None]
  - INCORRECT DOSE ADMINISTERED [None]
  - ABDOMINAL DISCOMFORT [None]
  - HEART RATE INCREASED [None]
  - MALAISE [None]
  - BODY TEMPERATURE INCREASED [None]
